FAERS Safety Report 7488489-5 (Version None)
Quarter: 2011Q2

REPORT INFORMATION
  Report Type: 
  Country: None (occurrence: None)
  Receive Date: 20110518
  Receipt Date: 20110511
  Transmission Date: 20111010
  Serious: Yes (Hospitalization)
  Sender: FDA-Public Use
  Company Number: FR-SANOFI-AVENTIS-2011SA030278

PATIENT
  Age: 63 Year
  Sex: Female
  Weight: 59 kg

DRUGS (3)
  1. GLYBURIDE [Concomitant]
     Route: 048
  2. PLAVIX [Suspect]
     Route: 048
  3. GLUCOPHAGE [Concomitant]

REACTIONS (2)
  - HYPERTENSION [None]
  - EPISTAXIS [None]
